FAERS Safety Report 8240215-8 (Version None)
Quarter: 2012Q1

REPORT INFORMATION
  Report Type: 
  Country: None (occurrence: None)
  Receive Date: 20120328
  Receipt Date: 20120322
  Transmission Date: 20120608
  Serious: Yes (Other)
  Sender: FDA-Public Use
  Company Number: US-BAYER-2011-081886

PATIENT
  Age: 26 Year
  Sex: Female
  Weight: 61.224 kg

DRUGS (8)
  1. YAZ [Suspect]
     Dosage: UNK
     Route: 048
     Dates: start: 20060101, end: 20070201
  2. VICODIN [Concomitant]
     Dosage: UNK
  3. VITAMIN TAB [Concomitant]
     Dosage: UNK UNK, QD
  4. IBUPROFEN [Concomitant]
     Dosage: UNK UNK, PRN
  5. BACTRIM [Concomitant]
     Indication: URINARY TRACT INFECTION
     Dosage: 800-160 MG, ONE TABLET TWICE DAILY
  6. COMBIVENT [Concomitant]
     Dosage: UNK UNK, PRN
  7. FLEXERIL [Concomitant]
     Dosage: UNK UNK, PRN
  8. ZOLOFT [Concomitant]
     Dosage: 100 MG, HALF TABLET BY MOUTH DAILY

REACTIONS (5)
  - ABDOMINAL PAIN UPPER [None]
  - NAUSEA [None]
  - GALLBLADDER INJURY [None]
  - PAIN [None]
  - VOMITING [None]
